FAERS Safety Report 9735424 (Version 2)
Quarter: 2015Q3

REPORT INFORMATION
  Report Type: Spontaneous
  Country: US (occurrence: US)
  Receive Date: 20131206
  Receipt Date: 20150804
  Transmission Date: 20151125
  Serious: No
  Sender: FDA-Public Use
  Company Number: US-GILEAD-2009-0022756

PATIENT
  Age: 54 Year
  Sex: Female

DRUGS (1)
  1. LETAIRIS [Suspect]
     Active Substance: AMBRISENTAN
     Indication: PULMONARY ARTERIAL HYPERTENSION
     Route: 048
     Dates: start: 20090612, end: 20090615

REACTIONS (5)
  - Fluid retention [Recovered/Resolved]
  - Headache [Unknown]
  - Pain in extremity [Unknown]
  - Oedema [Recovered/Resolved]
  - Nasal congestion [Unknown]
